FAERS Safety Report 9336482 (Version 2)
Quarter: 2013Q3

REPORT INFORMATION
  Report Type: Report from Study
  Country: AU (occurrence: AU)
  Receive Date: 20130607
  Receipt Date: 20130902
  Transmission Date: 20140515
  Serious: Yes (Other)
  Sender: FDA-Public Use
  Company Number: AU-ROCHE-1229241

PATIENT
  Age: 83 Year
  Sex: Female

DRUGS (3)
  1. RANIBIZUMAB [Suspect]
     Indication: AGE-RELATED MACULAR DEGENERATION
     Route: 050
     Dates: start: 201007
  2. RANIBIZUMAB [Suspect]
     Route: 050
     Dates: start: 201009
  3. BETADINE [Suspect]
     Indication: PRODUCT USED FOR UNKNOWN INDICATION
     Route: 065

REACTIONS (3)
  - Age-related macular degeneration [Unknown]
  - Foreign body sensation in eyes [Recovered/Resolved]
  - Toxicity to various agents [Unknown]
